FAERS Safety Report 8919249 (Version 2)
Quarter: 2013Q1

REPORT INFORMATION
  Report Type: Spontaneous
  Country: DE (occurrence: DE)
  Receive Date: 20121121
  Receipt Date: 20130111
  Transmission Date: 20140127
  Serious: Yes (Other)
  Sender: FDA-Public Use
  Company Number: DE-PFIZER INC-2012228056

PATIENT
  Age: 80 Year
  Sex: Female

DRUGS (1)
  1. ZELDOX [Suspect]
     Dosage: 20 MG, UNK
     Dates: start: 20090627, end: 201205

REACTIONS (11)
  - Aphagia [Unknown]
  - Pain [Not Recovered/Not Resolved]
  - Rash [Unknown]
  - Rhinorrhoea [Unknown]
  - Cardiovascular disorder [Unknown]
  - Dizziness [Unknown]
  - Nervous system disorder [Unknown]
  - Dyspepsia [Unknown]
  - Ear pain [Not Recovered/Not Resolved]
  - Chest pain [Not Recovered/Not Resolved]
  - Facial pain [Not Recovered/Not Resolved]
